FAERS Safety Report 7544210-3 (Version None)
Quarter: 2011Q2

REPORT INFORMATION
  Report Type: 
  Country: None (occurrence: None)
  Receive Date: 20110613
  Receipt Date: 20061205
  Transmission Date: 20111010
  Serious: Yes (Hospitalization)
  Sender: FDA-Public Use
  Company Number: PHHO2006JP16393

PATIENT
  Sex: Female

DRUGS (5)
  1. LOCHOLEST [Suspect]
     Dosage: 30 MG, DAILY
     Route: 048
     Dates: start: 20030904, end: 20051102
  2. ANTIPSYCHOTICS [Concomitant]
     Indication: PSYCHIATRIC SYMPTOM
  3. LOCHOLEST [Suspect]
     Indication: HYPERCHOLESTEROLAEMIA
     Dosage: 20MG DAILY
     Route: 048
     Dates: start: 20010119, end: 20030903
  4. AMARYL [Concomitant]
     Indication: DIABETES MELLITUS
  5. ANTIDEPRESSANTS [Concomitant]
     Indication: PSYCHIATRIC SYMPTOM

REACTIONS (6)
  - OVERDOSE [None]
  - DEPRESSIVE SYMPTOM [None]
  - PSYCHOTIC DISORDER [None]
  - PARANOIA [None]
  - ALTERED STATE OF CONSCIOUSNESS [None]
  - TOXICITY TO VARIOUS AGENTS [None]
